FAERS Safety Report 9021436 (Version 1)
Quarter: 2013Q1

REPORT INFORMATION
  Report Type: Spontaneous
  Country: US (occurrence: US)
  Receive Date: 20130119
  Receipt Date: 20130119
  Transmission Date: 20140127
  Serious: No
  Sender: FDA-Public Use
  Company Number: US-009507513-1301USA007055

PATIENT
  Sex: Female

DRUGS (2)
  1. JANUVIA [Suspect]
     Indication: METABOLIC DISORDER
     Dosage: 50 MG, UNK
     Route: 048
     Dates: start: 20121213
  2. METFORMIN [Suspect]

REACTIONS (1)
  - Diarrhoea [Recovered/Resolved]
